FAERS Safety Report 21873413 (Version 2)
Quarter: 2023Q1

REPORT INFORMATION
  Report Type: Report from Study
  Country: CA (occurrence: CA)
  Receive Date: 20230117
  Receipt Date: 20230206
  Transmission Date: 20230418
  Serious: Yes (Death, Other)
  Sender: FDA-Public Use
  Company Number: CA-BAYER-2022P027423

PATIENT
  Age: 16 Year
  Sex: Female

DRUGS (2)
  1. REGORAFENIB [Suspect]
     Active Substance: REGORAFENIB
     Indication: Sarcoma
     Dosage: 120 MG, QD, FOR 21 DAYS, FOLLOWED BY 7 DAY BREAK
     Route: 048
     Dates: start: 20221206
  2. REGORAFENIB [Suspect]
     Active Substance: REGORAFENIB
     Indication: Sarcoma
     Dosage: 80 MG, QD
     Route: 048
     Dates: end: 20220111

REACTIONS (7)
  - Sarcomatoid carcinoma of the lung [Fatal]
  - Neutrophil count decreased [Recovered/Resolved]
  - Full blood count decreased [Recovering/Resolving]
  - Headache [Recovered/Resolved]
  - Nausea [Recovered/Resolved]
  - Off label use [None]
  - Dyspnoea [None]

NARRATIVE: CASE EVENT DATE: 20221206
